FAERS Safety Report 24535227 (Version 1)
Quarter: 2024Q4

REPORT INFORMATION
  Report Type: Spontaneous
  Country: GB (occurrence: GB)
  Receive Date: 20241022
  Receipt Date: 20241022
  Transmission Date: 20250114
  Serious: Yes (Death, Life-Threatening, Hospitalization, Other)
  Sender: CIPLA
  Company Number: GB-MHRA-TPP28910607C15399775YC1705421527034

PATIENT

DRUGS (14)
  1. DONEPEZIL [Suspect]
     Active Substance: DONEPEZIL
     Indication: Ill-defined disorder
     Dosage: 5 MILLIGRAM (ORODISPERSIBLE)
     Route: 065
     Dates: start: 20240116
  2. MINERAL OIL\PARAFFIN [Concomitant]
     Active Substance: MINERAL OIL\PARAFFIN
     Indication: Ill-defined disorder
     Dosage: UNK, PRN (TO BE APPLIED AS A MOISTURISER OR SOAP SUBSTITUTE TO THE AFFECTED AREA(S) OF THE SKIN AS R
     Route: 061
     Dates: start: 20231222
  3. FUROSEMIDE [Concomitant]
     Active Substance: FUROSEMIDE
     Indication: Ill-defined disorder
     Dosage: 1 DOSAGE FORM, QD (ONE TABLET TO BE TAKEN ONCE A DAY IN THE MORNING TO REMOVE EXCESS FLUID)
     Route: 065
     Dates: start: 20231117, end: 20231215
  4. FUROSEMIDE [Concomitant]
     Active Substance: FUROSEMIDE
     Indication: Fluid retention
  5. APIXABAN [Concomitant]
     Active Substance: APIXABAN
     Indication: Ill-defined disorder
     Dosage: 2 DOSAGE FORM, BID (EVERY 12 HOURS) (TAKE TWO TABLETS TWICE A DAY FOR 1 WEEK, TO THI...)
     Route: 065
     Dates: start: 20231222
  6. DERMOL [BENZALKONIUM CHLORIDE;CHLORHEXIDINE HYDROCHLORIDE;ISOPROPYL MY [Concomitant]
     Indication: Ill-defined disorder
     Dosage: UNK (TO BE APPLIED LIBERALLY TO  DRY SKIN OR USED AS...)
     Route: 061
     Dates: start: 20240112
  7. MEMANTINE [Concomitant]
     Active Substance: MEMANTINE
     Indication: Ill-defined disorder
     Dosage: 1 DOSAGE FORM, QD (ONE TABLET A DAY FOR MEMORY)
     Route: 065
     Dates: start: 20230329
  8. VENLAFAXINE [Concomitant]
     Active Substance: VENLAFAXINE HYDROCHLORIDE
     Indication: Ill-defined disorder
     Dosage: 1 DOSAGE FORM, QD (ONE TO BE TAKEN EACH DAY WITH FOOD, IN THE MORN...)
     Route: 065
     Dates: start: 20230329
  9. LEVOTHYROXINE [Concomitant]
     Active Substance: LEVOTHYROXINE
     Indication: Ill-defined disorder
     Dosage: 1 DOSAGE FORM, QD (1 TO BE TAKEN IN THE MORNING)
     Route: 065
     Dates: start: 20230329
  10. GALANTAMINE [Concomitant]
     Active Substance: GALANTAMINE
     Indication: Ill-defined disorder
     Dosage: 1 DOSAGE FORM, QD (ONE TO BE TAKEN EACH MORNING)
     Route: 065
     Dates: start: 20230329
  11. POLYETHYLENE GLYCOL 3350\POTASSIUM CHLORIDE\SODIUM BICARBONATE\SODIUM [Concomitant]
     Active Substance: POLYETHYLENE GLYCOL 3350\POTASSIUM CHLORIDE\SODIUM BICARBONATE\SODIUM CHLORIDE
     Indication: Ill-defined disorder
     Dosage: UNK (1 -2 SACHETS DAILY)
     Route: 065
     Dates: start: 20230329
  12. ATORVASTATIN [Concomitant]
     Active Substance: ATORVASTATIN
     Indication: Ill-defined disorder
     Dosage: 1 DOSAGE FORM, QD (ONE TABLET TO BE TAKEN DAILY TO LOWER CHOLESTER...)
     Route: 065
     Dates: start: 20230821
  13. LEVETIRACETAM [Concomitant]
     Active Substance: LEVETIRACETAM
     Indication: Ill-defined disorder
     Dosage: 1 DOSAGE FORM, BID (EVERY 12 HOURS)
     Route: 065
     Dates: start: 20230910
  14. RISPERIDONE [Concomitant]
     Active Substance: RISPERIDONE
     Indication: Ill-defined disorder
     Dosage: 1 DOSAGE FORM, BID (EVERY 12 HOURS)
     Route: 065
     Dates: start: 20230920, end: 20231026

REACTIONS (1)
  - Death [Fatal]

NARRATIVE: CASE EVENT DATE: 20240116
